FAERS Safety Report 6030816-X (Version None)
Quarter: 2009Q1

REPORT INFORMATION
  Report Type: 
  Country: None (occurrence: None)
  Receive Date: 20090106
  Receipt Date: 20081224
  Transmission Date: 20090719
  Serious: Yes (Death)
  Sender: FDA-Public Use
  Company Number: RENA-1000341

PATIENT
  Age: 76 Year
  Sex: Female

DRUGS (1)
  1. RENAGEL [Suspect]
     Indication: HYPERPHOSPHATAEMIA
     Dosage: 1.0 G, TID, ORAL
     Route: 048
     Dates: start: 20060101, end: 20081015

REACTIONS (1)
  - SMALL INTESTINAL PERFORATION [None]
